FAERS Safety Report 4558816-7 (Version None)
Quarter: 2005Q1

REPORT INFORMATION
  Report Type: 
  Country: None (occurrence: None)
  Receive Date: 20050121
  Receipt Date: 20050118
  Transmission Date: 20050727
  Serious: Yes (Death)
  Sender: FDA-Public Use
  Company Number: FR-GLAXOSMITHKLINE-B0364660A

PATIENT
  Age: 52 Year
  Sex: Male

DRUGS (3)
  1. AUGMENTIN '125' [Suspect]
     Indication: ANTIBACTERIAL PROPHYLAXIS
     Dosage: 2G PER DAY
     Route: 042
     Dates: start: 20050117, end: 20050117
  2. ANESTHETICS [Concomitant]
     Indication: SURGERY
     Route: 065
     Dates: start: 20050117, end: 20050117
  3. PYOSTACINE [Concomitant]

REACTIONS (2)
  - ANAPHYLACTIC SHOCK [None]
  - RESUSCITATION [None]
